FAERS Safety Report 6461869-2 (Version None)
Quarter: 2009Q4

REPORT INFORMATION
  Report Type: 
  Country: None (occurrence: None)
  Receive Date: 20091130
  Receipt Date: 20091123
  Transmission Date: 20100525
  Serious: Yes (Other)
  Sender: FDA-Public Use
  Company Number: US-ROXANE LABORATORIES, INC.-2009-RO-01184RO

PATIENT
  Age: 59 Year
  Sex: Male

DRUGS (11)
  1. PREDNISONE [Suspect]
     Indication: GOUTY ARTHRITIS
     Route: 048
  2. PREDNISONE [Suspect]
  3. PREDNISONE [Suspect]
     Route: 048
  4. PREDNISONE [Suspect]
  5. PREDNISONE [Suspect]
  6. PREDNISONE [Suspect]
  7. PROBENECID [Suspect]
     Indication: SYNOVITIS
     Dosage: 1000 MG
  8. TRIAMCINOLONE [Suspect]
     Indication: SYNOVITIS
  9. COLCHICINE [Suspect]
     Indication: SYNOVITIS
     Dosage: 0.6 MG
     Route: 048
  10. ANAKINRA [Concomitant]
     Indication: GOUT
     Route: 058
  11. ANAKINRA [Concomitant]
     Route: 058

REACTIONS (11)
  - BLOOD CREATININE INCREASED [None]
  - CUSHINGOID [None]
  - DIABETES MELLITUS [None]
  - DIABETIC NEPHROPATHY [None]
  - DIABETIC NEUROPATHY [None]
  - GOUT [None]
  - NEPHROLITHIASIS [None]
  - RENAL FAILURE CHRONIC [None]
  - SKIN FRAGILITY [None]
  - SYNOVITIS [None]
  - WEIGHT INCREASED [None]
